FAERS Safety Report 25039927 (Version 1)
Quarter: 2025Q1

REPORT INFORMATION
  Report Type: Spontaneous
  Country: CN (occurrence: CN)
  Receive Date: 20250305
  Receipt Date: 20250305
  Transmission Date: 20250408
  Serious: Yes (Other)
  Sender: BOEHRINGER INGELHEIM
  Company Number: CN-BoehringerIngelheim-2025-BI-013030

PATIENT
  Age: 84 Year
  Sex: Male
  Weight: 53.000 kg

DRUGS (1)
  1. COMBIVENT [Suspect]
     Active Substance: ALBUTEROL SULFATE\IPRATROPIUM BROMIDE
     Indication: Chronic obstructive pulmonary disease
     Dates: start: 20190923, end: 20190925

REACTIONS (1)
  - Seizure [Recovered/Resolved]

NARRATIVE: CASE EVENT DATE: 20190924
